FAERS Safety Report 17839643 (Version 2)
Quarter: 2020Q2

REPORT INFORMATION
  Report Type: Spontaneous
  Country: US (occurrence: US)
  Receive Date: 20200529
  Receipt Date: 20200625
  Transmission Date: 20200714
  Serious: No
  Sender: FDA-Public Use
  Company Number: US-KARYOPHARM-2020KPT000484

PATIENT

DRUGS (1)
  1. XPOVIO [Suspect]
     Active Substance: SELINEXOR
     Indication: PLASMA CELL MYELOMA
     Dosage: 60 MG, 2X/WEEK
     Route: 048
     Dates: start: 20200420, end: 20200427

REACTIONS (7)
  - Drug ineffective [Unknown]
  - Dehydration [Not Recovered/Not Resolved]
  - Nausea [Recovered/Resolved]
  - Mental status changes [Unknown]
  - Malaise [Unknown]
  - Leukopenia [Unknown]
  - Hyperproteinaemia [Unknown]

NARRATIVE: CASE EVENT DATE: 20200420
